FAERS Safety Report 9201832 (Version 2)
Quarter: 2014Q4

REPORT INFORMATION
  Report Type: Spontaneous
  Country: FR (occurrence: FR)
  Receive Date: 20130401
  Receipt Date: 20141104
  Transmission Date: 20150529
  Serious: Yes (Hospitalization)
  Sender: FDA-Public Use
  Company Number: FR-ROCHE-1208562

PATIENT
  Age: 30 Year
  Sex: Male

DRUGS (7)
  1. MABTHERA [Suspect]
     Active Substance: RITUXIMAB
     Indication: B-CELL LYMPHOMA
     Dosage: FIRST CYCLE
     Route: 042
     Dates: start: 20130104
  2. MABTHERA [Suspect]
     Active Substance: RITUXIMAB
     Dosage: THIRD CYCLE
     Route: 042
     Dates: start: 20130223
  3. MABTHERA [Suspect]
     Active Substance: RITUXIMAB
     Dosage: SECOND CYCLE
     Route: 042
     Dates: start: 20130126
  4. CYTARABINE. [Concomitant]
     Active Substance: CYTARABINE
  5. IFOSFAMIDE. [Concomitant]
     Active Substance: IFOSFAMIDE
  6. METHOTREXATE [Suspect]
     Active Substance: METHOTREXATE
     Indication: B-CELL LYMPHOMA
     Route: 042
     Dates: start: 20130225, end: 20130225
  7. ETOPOSIDE. [Concomitant]
     Active Substance: ETOPOSIDE

REACTIONS (1)
  - Acute kidney injury [Recovered/Resolved]

NARRATIVE: CASE EVENT DATE: 20130226
